FAERS Safety Report 5264408-7 (Version None)
Quarter: 2007Q1

REPORT INFORMATION
  Report Type: 
  Country: None (occurrence: None)
  Receive Date: 20070309
  Receipt Date: 20070226
  Transmission Date: 20070707
  Serious: Yes (Other)
  Sender: FDA-Public Use
  Company Number: GXKR2007US02032

PATIENT
  Age: 28 Year
  Sex: Female

DRUGS (3)
  1. INDOMETHACIN [Suspect]
     Indication: PREMATURE LABOUR
  2. TERBUTALINE SULFATE [Concomitant]
  3. MAGNESIUM SULFATE [Concomitant]

REACTIONS (11)
  - ADRENAL HAEMORRHAGE [None]
  - ASCITES [None]
  - DRUG ADMINISTRATION ERROR [None]
  - DRUG EXPOSURE DURING PREGNANCY [None]
  - HEPATIC NECROSIS [None]
  - HYDROPS FOETALIS [None]
  - NEONATAL DISORDER [None]
  - PLACENTAL TRANSFUSION SYNDROME [None]
  - PREMATURE LABOUR [None]
  - RIGHT VENTRICULAR FAILURE [None]
  - STILLBIRTH [None]
